FAERS Safety Report 10009050 (Version 3)
Quarter: 2015Q3

REPORT INFORMATION
  Report Type: Spontaneous
  Country: US (occurrence: US)
  Receive Date: 20140313
  Receipt Date: 20150812
  Transmission Date: 20151125
  Serious: No
  Sender: FDA-Public Use
  Company Number: US-GILEAD-2012-0057351

PATIENT
  Age: 51 Year
  Sex: Female

DRUGS (18)
  1. OXYCODONE [Concomitant]
     Active Substance: OXYCODONE
  2. OXCARBAZEPINE. [Concomitant]
     Active Substance: OXCARBAZEPINE
  3. RAMELTEON [Concomitant]
     Active Substance: RAMELTEON
  4. SPIRONOLACTONE. [Concomitant]
     Active Substance: SPIRONOLACTONE
  5. GABAPENTIN. [Concomitant]
     Active Substance: GABAPENTIN
  6. KETOCONAZOLE. [Concomitant]
     Active Substance: KETOCONAZOLE
  7. FUROSEMIDE. [Concomitant]
     Active Substance: FUROSEMIDE
  8. EPOPROSTENOL. [Concomitant]
     Active Substance: EPOPROSTENOL
  9. HALOPERIDOL. [Concomitant]
     Active Substance: HALOPERIDOL
  10. OLANZAPINE. [Concomitant]
     Active Substance: OLANZAPINE
  11. BENZTROPINE MESYLATE. [Concomitant]
     Active Substance: BENZTROPINE MESYLATE
  12. LETAIRIS [Suspect]
     Active Substance: AMBRISENTAN
     Indication: PULMONARY HYPERTENSION
     Dosage: 10 MG, UNK
     Route: 048
     Dates: start: 20120112
  13. LORAZEPAM. [Concomitant]
     Active Substance: LORAZEPAM
  14. CITALOPRAM [Concomitant]
     Active Substance: CITALOPRAM HYDROBROMIDE
  15. PANTOPRAZOLE [Concomitant]
     Active Substance: PANTOPRAZOLE SODIUM
  16. POTASSIUM CHLORIDE. [Concomitant]
     Active Substance: POTASSIUM CHLORIDE
  17. WARFARIN SODIUM. [Concomitant]
     Active Substance: WARFARIN SODIUM
  18. SILDENAFIL. [Concomitant]
     Active Substance: SILDENAFIL

REACTIONS (1)
  - Insomnia [Unknown]
